FAERS Safety Report 14956141 (Version 1)
Quarter: 2018Q2

REPORT INFORMATION
  Report Type: Spontaneous
  Country: US (occurrence: US)
  Receive Date: 20180531
  Receipt Date: 20180531
  Transmission Date: 20180711
  Serious: No
  Sender: FDA-Public Use
  Company Number: US-NOVEN PHARMACEUTICALS, INC.-US2018000104

PATIENT

DRUGS (9)
  1. CLONIDINE. [Concomitant]
     Active Substance: CLONIDINE
  2. DAYTRANA [Suspect]
     Active Substance: METHYLPHENIDATE
     Dosage: 15 MG, UNK
     Route: 062
     Dates: start: 20180209, end: 201802
  3. DAYTRANA [Suspect]
     Active Substance: METHYLPHENIDATE
     Dosage: 20 MG, UNK
     Route: 062
     Dates: start: 2017, end: 201802
  4. TRAZODONE HYDROCHLORIDE. [Concomitant]
     Active Substance: TRAZODONE HYDROCHLORIDE
  5. CELEXA [Concomitant]
     Active Substance: CITALOPRAM HYDROBROMIDE
  6. LAMICTAL [Concomitant]
     Active Substance: LAMOTRIGINE
  7. DAYTRANA [Suspect]
     Active Substance: METHYLPHENIDATE
     Indication: ATTENTION DEFICIT/HYPERACTIVITY DISORDER
     Dosage: 10 MG, UNKNOWN
     Route: 062
  8. DAYTRANA [Suspect]
     Active Substance: METHYLPHENIDATE
     Dosage: 15 MG, UNK
     Route: 062
  9. DAYTRANA [Suspect]
     Active Substance: METHYLPHENIDATE
     Dosage: 20 MG, UNK
     Route: 062
     Dates: start: 201802

REACTIONS (6)
  - Psychomotor hyperactivity [Recovered/Resolved]
  - Disturbance in attention [Recovered/Resolved]
  - Drug ineffective [Recovered/Resolved]
  - Impulsive behaviour [Recovered/Resolved]
  - Drug effect decreased [Recovered/Resolved]
  - Incorrect dose administered [Recovered/Resolved]

NARRATIVE: CASE EVENT DATE: 201802
